FAERS Safety Report 25094861 (Version 1)
Quarter: 2025Q1

REPORT INFORMATION
  Report Type: Report from Study
  Country: ES (occurrence: ES)
  Receive Date: 20250319
  Receipt Date: 20250319
  Transmission Date: 20250409
  Serious: Yes (Other)
  Sender: GILEAD
  Company Number: ES-GILEAD-2025-0707288

PATIENT
  Age: 8 Decade
  Sex: Male

DRUGS (1)
  1. AXICABTAGENE CILOLEUCEL [Suspect]
     Active Substance: AXICABTAGENE CILOLEUCEL
     Indication: B-cell lymphoma
     Route: 065

REACTIONS (2)
  - Malignant melanoma [Recovered/Resolved]
  - Squamous cell carcinoma of skin [Recovered/Resolved]
